FAERS Safety Report 6295594-8 (Version None)
Quarter: 2009Q3

REPORT INFORMATION
  Report Type: 
  Country: None (occurrence: None)
  Receive Date: 20090731
  Receipt Date: 20090620
  Transmission Date: 20100115
  Serious: Yes (Hospitalization)
  Sender: FDA-Public Use
  Company Number: 2006EU000365

PATIENT
  Age: 70 Year
  Sex: Male

DRUGS (40)
  1. TACROLIMUS [Suspect]
     Indication: RENAL TRANSPLANT
     Dosage: 1 MG, UID/QD, ORAL
     Route: 048
     Dates: start: 20040212
  2. DACLIZUMAB(DACLIZUMAB) [Suspect]
     Indication: RENAL TRANSPLANT
     Dosage: 165 MG, UID/QD, IV NOS; 75 MG, OTHER, IV NOS; 80 MG, OTHER, IV NOS
     Route: 042
     Dates: start: 20031111, end: 20031111
  3. DACLIZUMAB(DACLIZUMAB) [Suspect]
     Indication: RENAL TRANSPLANT
     Dosage: 165 MG, UID/QD, IV NOS; 75 MG, OTHER, IV NOS; 80 MG, OTHER, IV NOS
     Route: 042
     Dates: start: 20031125, end: 20031221
  4. DACLIZUMAB(DACLIZUMAB) [Suspect]
     Indication: RENAL TRANSPLANT
     Dosage: 165 MG, UID/QD, IV NOS; 75 MG, OTHER, IV NOS; 80 MG, OTHER, IV NOS
     Route: 042
     Dates: start: 20031222, end: 20040109
  5. MYCOPHENOLATE MOFETIL [Suspect]
     Indication: RENAL TRANSPLANT
     Dosage: SEE IMAGE
     Route: 046
     Dates: start: 20031111, end: 20040107
  6. MYCOPHENOLATE MOFETIL [Suspect]
     Indication: RENAL TRANSPLANT
     Dosage: SEE IMAGE
     Route: 046
     Dates: start: 20040108, end: 20040108
  7. MYCOPHENOLATE MOFETIL [Suspect]
     Indication: RENAL TRANSPLANT
     Dosage: SEE IMAGE
     Route: 046
     Dates: start: 20040109, end: 20040123
  8. MYCOPHENOLATE MOFETIL [Suspect]
     Indication: RENAL TRANSPLANT
     Dosage: SEE IMAGE
     Route: 046
     Dates: start: 20040209, end: 20040209
  9. MYCOPHENOLATE MOFETIL [Suspect]
     Indication: RENAL TRANSPLANT
     Dosage: SEE IMAGE
     Route: 046
     Dates: start: 20040210, end: 20040315
  10. MYCOPHENOLATE MOFETIL [Suspect]
     Indication: RENAL TRANSPLANT
     Dosage: SEE IMAGE
     Route: 046
     Dates: start: 20040331
  11. SIROLIMUS(SIROLIMUS) [Suspect]
     Indication: RENAL TRANSPLANT
     Dosage: 9 MG, ORAL; 3 MG, UID/QD, ORAL
     Route: 048
     Dates: start: 20031111, end: 20040123
  12. SIROLIMUS(SIROLIMUS) [Suspect]
     Indication: RENAL TRANSPLANT
     Dosage: 9 MG, ORAL; 3 MG, UID/QD, ORAL
     Route: 048
     Dates: start: 20040126, end: 20040126
  13. METHYLPREDNISOLONE [Suspect]
     Indication: RENAL TRANSPLANT
     Dosage: 250 MG, BID, IV NOS; 500 MG, UID/QD,; 16 MG, BID, IV NOS; 40 MG, BID,; 20 MG, UID/QD, IV NOS
     Route: 042
     Dates: start: 20031111, end: 20031113
  14. METHYLPREDNISOLONE [Suspect]
     Indication: RENAL TRANSPLANT
     Dosage: 250 MG, BID, IV NOS; 500 MG, UID/QD,; 16 MG, BID, IV NOS; 40 MG, BID,; 20 MG, UID/QD, IV NOS
     Route: 042
     Dates: start: 20040116, end: 20040118
  15. METHYLPREDNISOLONE [Suspect]
     Indication: RENAL TRANSPLANT
     Dosage: 250 MG, BID, IV NOS; 500 MG, UID/QD,; 16 MG, BID, IV NOS; 40 MG, BID,; 20 MG, UID/QD, IV NOS
     Route: 042
     Dates: start: 20040124, end: 20040128
  16. METHYLPREDNISOLONE [Suspect]
     Indication: RENAL TRANSPLANT
     Dosage: 250 MG, BID, IV NOS; 500 MG, UID/QD,; 16 MG, BID, IV NOS; 40 MG, BID,; 20 MG, UID/QD, IV NOS
     Route: 042
     Dates: start: 20040316, end: 20040318
  17. METHYLPREDNISOLONE [Suspect]
     Indication: RENAL TRANSPLANT
     Dosage: 250 MG, BID, IV NOS; 500 MG, UID/QD,; 16 MG, BID, IV NOS; 40 MG, BID,; 20 MG, UID/QD, IV NOS
     Route: 042
     Dates: start: 20041112
  18. PREDNISONE TAB [Suspect]
     Indication: RENAL TRANSPLANT
     Dosage: 20 MG, UID/QD, ORAL
     Route: 048
     Dates: start: 20031113, end: 20040124
  19. PREDNISONE TAB [Suspect]
     Indication: RENAL TRANSPLANT
     Dosage: 20 MG, UID/QD, ORAL
     Route: 048
     Dates: start: 20040128
  20. VALGANCICLOVIR HCL [Suspect]
     Indication: CYTOMEGALOVIRUS INFECTION
     Dosage: 1800 MG, UID/QD, IV NOS
     Route: 042
     Dates: start: 20040112, end: 20040112
  21. VALGANCICLOVIR HCL [Suspect]
     Indication: CYTOMEGALOVIRUS INFECTION
     Dosage: 1800 MG, UID/QD, IV NOS
     Route: 042
     Dates: start: 20040113, end: 20040117
  22. VALGANCICLOVIR HCL [Suspect]
     Indication: CYTOMEGALOVIRUS INFECTION
     Dosage: 1800 MG, UID/QD, IV NOS
     Route: 042
     Dates: start: 20040217, end: 20040315
  23. OMEPRAZOLE [Concomitant]
  24. DIAZEPAM [Concomitant]
  25. ERYTHROPOIETIN (ERYTHROPOIETIN) [Concomitant]
  26. COTRIM [Concomitant]
  27. CARVEDILOL [Concomitant]
  28. SULFATO FERROSO (FERROUS SULFATE) [Concomitant]
  29. NIACIN [Concomitant]
  30. TRIMETHOPRIM + SULFAMETHOXAZOLE [Concomitant]
  31. AMOXICILLIN W/CLAVULANIC ACID (CLAVULANIC ACID) [Concomitant]
  32. CEFTRIAXONE (CEFTRIAXONE SODIUM) [Concomitant]
  33. CIPROFLOXACIN [Concomitant]
  34. GANCICLOVIR [Concomitant]
  35. ISONIAZID [Concomitant]
  36. LEVOFLOXACIN [Concomitant]
  37. VANCOMYCIN [Concomitant]
  38. FILGRASTIM (FILGRASTIM) [Concomitant]
  39. CALCITRIOL [Concomitant]
  40. AMLODIPINE [Concomitant]

REACTIONS (11)
  - BACTERIAL PYELONEPHRITIS [None]
  - BONE MARROW TOXICITY [None]
  - CULTURE URINE POSITIVE [None]
  - CYTOMEGALOVIRUS INFECTION [None]
  - ESCHERICHIA URINARY TRACT INFECTION [None]
  - HAEMODIALYSIS [None]
  - OPPORTUNISTIC INFECTION [None]
  - PYELONEPHRITIS ACUTE [None]
  - RENAL HAEMORRHAGE [None]
  - RENAL TUBULAR NECROSIS [None]
  - THROMBOTIC MICROANGIOPATHY [None]
